FAERS Safety Report 5776666-0 (Version None)
Quarter: 2008Q2

REPORT INFORMATION
  Report Type: 
  Country: None (occurrence: None)
  Receive Date: 20080618
  Receipt Date: 20080402
  Transmission Date: 20081010
  Serious: No
  Sender: FDA-Public Use
  Company Number: US-ASTRAZENECA-2008UW04123

PATIENT
  Age: 51 Year
  Sex: Female
  Weight: 75.5 kg

DRUGS (6)
  1. SYMBICORT [Suspect]
     Indication: ASTHMA
     Dosage: 80/4.5  1 PUFF DAILY
     Route: 055
     Dates: start: 20071213
  2. PULMICORT FLEXHALER [Suspect]
     Dosage: 180 UG
     Route: 055
     Dates: start: 20071222, end: 20071224
  3. PULMICORT FLEXHALER [Suspect]
     Dosage: 180 UG
     Route: 055
     Dates: start: 20080103, end: 20080105
  4. COMBIVENT [Concomitant]
     Indication: ASTHMA
     Dosage: 103-18 AERS - 2 PUFFS Q 4HR-6HR PRN
     Dates: start: 20080215
  5. VITAMIN CAP [Concomitant]
     Dosage: 1 TABLET PO DAILY
     Route: 048
     Dates: start: 20080128
  6. TILADE [Concomitant]
     Indication: ASTHMA
     Dosage: 2 PUFFS QID
     Dates: start: 20080321

REACTIONS (10)
  - ANTINUCLEAR ANTIBODY INCREASED [None]
  - ARTHRALGIA [None]
  - ASTHMA [None]
  - CARDIAC DISORDER [None]
  - HYPOKALAEMIA [None]
  - INJURY [None]
  - JOINT SWELLING [None]
  - PAIN [None]
  - RED BLOOD CELL SEDIMENTATION RATE INCREASED [None]
  - VISION BLURRED [None]
